FAERS Safety Report 5040192-7 (Version None)
Quarter: 2006Q2

REPORT INFORMATION
  Report Type: 
  Country: None (occurrence: None)
  Receive Date: 20060630
  Receipt Date: 20060620
  Transmission Date: 20061013
  Serious: Yes (Other)
  Sender: FDA-Public Use
  Company Number: 2006GB00986

PATIENT
  Sex: Female
  Weight: 90 kg

DRUGS (1)
  1. ANASTROZOLE [Suspect]
     Route: 048
     Dates: start: 20060509, end: 20060510

REACTIONS (3)
  - BACK PAIN [None]
  - RASH [None]
  - SWELLING FACE [None]
